FAERS Safety Report 5024218-2 (Version None)
Quarter: 2006Q2

REPORT INFORMATION
  Report Type: 
  Country: None (occurrence: None)
  Receive Date: 20060613
  Receipt Date: 20060607
  Transmission Date: 20061013
  Serious: Yes (Hospitalization, Other)
  Sender: FDA-Public Use
  Company Number: PHRM2006FR01730

PATIENT
  Age: 72 Year
  Sex: Female

DRUGS (4)
  1. GLIBENESE [Suspect]
     Indication: DIABETES MELLITUS
     Dosage: 400 MG/DAY
     Route: 048
     Dates: end: 20051230
  2. COTAREG [Suspect]
     Indication: HYPERTENSION
     Dosage: 1 DF, BID
     Route: 048
     Dates: end: 20051228
  3. GLUCOR [Suspect]
     Indication: DIABETES MELLITUS
     Dosage: 400 MG/DAY
     Route: 048
     Dates: end: 20051230
  4. ARICEPT [Suspect]
     Indication: DEMENTIA ALZHEIMER'S TYPE
     Dosage: 10 MG, QD
     Route: 048
     Dates: start: 20050801, end: 20051228

REACTIONS (16)
  - ALANINE AMINOTRANSFERASE INCREASED [None]
  - ARTERIOSCLEROSIS [None]
  - ASPARTATE AMINOTRANSFERASE INCREASED [None]
  - BLOOD ALKALINE PHOSPHATASE INCREASED [None]
  - BLOOD BILIRUBIN INCREASED [None]
  - BLOOD PRESSURE SYSTOLIC INCREASED [None]
  - DISORIENTATION [None]
  - EMBOLISM [None]
  - GAMMA-GLUTAMYLTRANSFERASE INCREASED [None]
  - HEPATIC ENZYME INCREASED [None]
  - HEPATIC NEOPLASM [None]
  - HYPERGLYCAEMIA [None]
  - HYPERTRIGLYCERIDAEMIA [None]
  - HYPONATRAEMIA [None]
  - LOSS OF CONSCIOUSNESS [None]
  - PETIT MAL EPILEPSY [None]
